FAERS Safety Report 8271037-X (Version None)
Quarter: 2012Q2

REPORT INFORMATION
  Report Type: 
  Country: None (occurrence: None)
  Receive Date: 20120410
  Receipt Date: 20120403
  Transmission Date: 20120825
  Serious: Yes (Hospitalization, Other)
  Sender: FDA-Public Use
  Company Number: US-AMGEN-QUU435339

PATIENT
  Age: 72 Year
  Sex: Female
  Weight: 78.458 kg

DRUGS (5)
  1. PRAVASTATIN [Concomitant]
     Dosage: 40 MG, UNK
     Route: 048
  2. ENBREL [Suspect]
     Indication: RHEUMATOID ARTHRITIS
     Dosage: 50 MG, QWK
     Route: 058
     Dates: start: 20060201
  3. PREDNISONE TAB [Concomitant]
     Dosage: 5 MG, UNK
     Route: 048
  4. HYDROCHLOROTHIAZIDE [Concomitant]
     Dosage: 125 MG, UNK
     Route: 048
  5. PLAVIX [Concomitant]
     Dosage: 75 MG, UNK
     Route: 048

REACTIONS (6)
  - CEREBROVASCULAR ACCIDENT [None]
  - HYPOPHAGIA [None]
  - DECREASED APPETITE [None]
  - WEIGHT DECREASED [None]
  - INJECTION SITE PAIN [None]
  - DIABETES MELLITUS [None]
